FAERS Safety Report 24717684 (Version 8)
Quarter: 2025Q2

REPORT INFORMATION
  Report Type: Spontaneous
  Country: US (occurrence: US)
  Receive Date: 20241210
  Receipt Date: 20250612
  Transmission Date: 20250716
  Serious: No
  Sender: PFIZER
  Company Number: US-PFIZER INC-202400316029

PATIENT
  Age: 19 Year
  Sex: Male
  Weight: 72.57 kg

DRUGS (5)
  1. GENOTROPIN [Suspect]
     Active Substance: SOMATROPIN
     Indication: Growth hormone deficiency
     Dosage: 3 MG ONCE A DAY, 7 DAYS A WEEK
  2. GENOTROPIN [Suspect]
     Active Substance: SOMATROPIN
     Indication: Prader-Willi syndrome
  3. LETROZOLE [Concomitant]
     Active Substance: LETROZOLE
     Indication: Bone disorder
     Dosage: 2.5MG ONCE A DAY BY MOUTH
     Route: 048
     Dates: start: 2022
  4. QUILLICHEW ER [Concomitant]
     Active Substance: METHYLPHENIDATE HYDROCHLORIDE
     Indication: Attention deficit hyperactivity disorder
     Dosage: 20MG ONCE A DAY BY MOUTH
     Route: 048
     Dates: start: 2023
  5. OXCARBAZEPINE [Concomitant]
     Active Substance: OXCARBAZEPINE
     Indication: Affective disorder
     Dosage: 300MG TWICE A DAY BY MOUTH
     Route: 048
     Dates: start: 2023

REACTIONS (4)
  - Sleep apnoea syndrome [Unknown]
  - Device information output issue [Unknown]
  - Device power source issue [Unknown]
  - Drug dose omission by device [Unknown]
